FAERS Safety Report 16228490 (Version 4)
Quarter: 2019Q4

REPORT INFORMATION
  Report Type: Spontaneous
  Country: US (occurrence: US)
  Receive Date: 20190423
  Receipt Date: 20191025
  Transmission Date: 20200122
  Serious: Yes (Disabling, Other)
  Sender: FDA-Public Use
  Company Number: US-PFIZER INC-2019170496

PATIENT
  Age: 26 Year
  Sex: Female

DRUGS (2)
  1. DEPO-MEDROL [Suspect]
     Active Substance: METHYLPREDNISOLONE ACETATE
     Indication: PROCEDURAL PAIN
     Dosage: 160 MG, UNK
     Route: 014
  2. DEPO-MEDROL [Suspect]
     Active Substance: METHYLPREDNISOLONE ACETATE
     Dosage: 180 MG, UNK (FOR EACH JOINT)
     Route: 014

REACTIONS (13)
  - Anxiety [Unknown]
  - Myopathy [Unknown]
  - Gait disturbance [Unknown]
  - Infertility female [Unknown]
  - Psychotic disorder [Unknown]
  - Fall [Unknown]
  - Functional gastrointestinal disorder [Unknown]
  - Neuropathy peripheral [Unknown]
  - Adrenal insufficiency [Unknown]
  - Asthenia [Unknown]
  - Bladder dysfunction [Unknown]
  - Off label use [Unknown]
  - Product use in unapproved indication [Unknown]
